FAERS Safety Report 16034211 (Version 2)
Quarter: 2025Q4

REPORT INFORMATION
  Report Type: Spontaneous
  Country: EU (occurrence: EU)
  Receive Date: 20190305
  Receipt Date: 20251230
  Transmission Date: 20260117
  Serious: Yes (Life-Threatening, Hospitalization, Other)
  Sender: AUROBINDO
  Company Number: EU-AUROBINDO-AUR-APL-2019-011325

PATIENT
  Age: 76 Year
  Sex: Male

DRUGS (5)
  1. PRAVASTATIN SODIUM [Interacting]
     Active Substance: PRAVASTATIN SODIUM
     Indication: Hyperlipidaemia
     Dosage: 10 MILLIGRAM, ONCE A DAY
     Route: 061
     Dates: start: 2010, end: 20161115
  2. CARVEDILOL [Interacting]
     Active Substance: CARVEDILOL
     Indication: Product used for unknown indication
     Dosage: 6.25 MILLIGRAM, ONCE A DAY
     Route: 061
     Dates: start: 201209
  3. SINTROM [Interacting]
     Active Substance: ACENOCOUMAROL
     Indication: Deep vein thrombosis
     Dosage: UNK UNK, ONCE A DAY
     Route: 061
     Dates: start: 200708, end: 20161115
  4. METFORMIN [Concomitant]
     Active Substance: METFORMIN HYDROCHLORIDE
     Indication: Diabetes mellitus
     Dosage: 1.7 MILLIGRAM, ONCE A DAY
     Route: 061
     Dates: start: 2010
  5. TAMSULOSIN [Concomitant]
     Active Substance: TAMSULOSIN
     Indication: Benign prostatic hyperplasia
     Dosage: 0.4 MILLIGRAM, ONCE A DAY
     Route: 061
     Dates: start: 201207

REACTIONS (2)
  - Haemorrhage intracranial [Recovering/Resolving]
  - Drug interaction [Unknown]

NARRATIVE: CASE EVENT DATE: 20161115
